FAERS Safety Report 16774578 (Version 5)
Quarter: 2020Q1

REPORT INFORMATION
  Report Type: Report from Study
  Country: DE (occurrence: DE)
  Receive Date: 20190905
  Receipt Date: 20200309
  Transmission Date: 20200409
  Serious: Yes (Death, Hospitalization, Other)
  Sender: FDA-Public Use
  Company Number: DE-ROCHE-2391212

PATIENT
  Age: 54 Year
  Sex: Male

DRUGS (16)
  1. OCRELIZUMAB. [Suspect]
     Active Substance: OCRELIZUMAB
     Indication: MULTIPLE SCLEROSIS
     Route: 042
     Dates: start: 20181206, end: 20181206
  2. METYPRED [METHYLPREDNISOLONE] [Concomitant]
     Active Substance: METHYLPREDNISOLONE
     Indication: PROPHYLAXIS
     Route: 042
     Dates: start: 20180612, end: 20180612
  3. METYPRED [METHYLPREDNISOLONE] [Concomitant]
     Active Substance: METHYLPREDNISOLONE
     Route: 042
     Dates: start: 20180626, end: 20180626
  4. FENISTIL [Concomitant]
     Active Substance: DIMETHINDENE
     Route: 042
     Dates: start: 20181206, end: 20181206
  5. FENISTIL [Concomitant]
     Active Substance: DIMETHINDENE
     Route: 042
     Dates: start: 20180612, end: 20180612
  6. NOVAMINSULFON [Concomitant]
     Active Substance: METAMIZOLE
     Route: 065
  7. METYPRED [METHYLPREDNISOLONE] [Concomitant]
     Active Substance: METHYLPREDNISOLONE
     Route: 042
     Dates: start: 20181206, end: 20181206
  8. LACTULOSE. [Concomitant]
     Active Substance: LACTULOSE
     Route: 065
  9. INHIXA [Concomitant]
     Active Substance: ENOXAPARIN SODIUM
     Route: 065
  10. DEXAMETHASONE. [Concomitant]
     Active Substance: DEXAMETHASONE
     Route: 065
  11. MICTONORM [Concomitant]
     Active Substance: PROPIVERINE HYDROCHLORIDE
     Route: 065
  12. MICTONORM [Concomitant]
     Active Substance: PROPIVERINE HYDROCHLORIDE
     Route: 048
  13. OCRELIZUMAB. [Suspect]
     Active Substance: OCRELIZUMAB
     Route: 042
     Dates: start: 20180612, end: 20180626
  14. FENISTIL [Concomitant]
     Active Substance: DIMETHINDENE
     Indication: PROPHYLAXIS
     Route: 042
     Dates: start: 20180626, end: 20180626
  15. GABAPENTIN. [Concomitant]
     Active Substance: GABAPENTIN
     Route: 048
     Dates: start: 2005
  16. CITALOPRAM [Concomitant]
     Active Substance: CITALOPRAM HYDROBROMIDE
     Indication: DEPRESSION
     Route: 048

REACTIONS (7)
  - Faecaloma [Recovered/Resolved]
  - Multiple sclerosis relapse [Unknown]
  - Multiple sclerosis [Unknown]
  - Vomiting [Not Recovered/Not Resolved]
  - Bronchial carcinoma [Fatal]
  - Seizure [Recovered/Resolved]
  - Hernia [Unknown]

NARRATIVE: CASE EVENT DATE: 201812
